FAERS Safety Report 21585608 (Version 7)
Quarter: 2023Q2

REPORT INFORMATION
  Report Type: Report from Study
  Country: CN (occurrence: CN)
  Receive Date: 20221111
  Receipt Date: 20230522
  Transmission Date: 20230722
  Serious: Yes (Hospitalization, Other)
  Sender: FDA-Public Use
  Company Number: CN-BRISTOL-MYERS SQUIBB COMPANY-2022-133412

PATIENT
  Age: 63 Year
  Sex: Female
  Weight: 70 kg

DRUGS (5)
  1. TELMISARTAN [Concomitant]
     Active Substance: TELMISARTAN
     Indication: Product used for unknown indication
     Route: 048
     Dates: start: 200911
  2. METFORMIN HYDROCHLORIDE [Concomitant]
     Active Substance: METFORMIN HYDROCHLORIDE
     Indication: Product used for unknown indication
     Route: 048
     Dates: start: 200911
  3. INSULIN NOS [Concomitant]
     Active Substance: INSULIN NOS
     Indication: Product used for unknown indication
  4. SIGLIPTIN PHOSPHATE [Concomitant]
     Indication: Product used for unknown indication
  5. NIFEDIPINE [Concomitant]
     Active Substance: NIFEDIPINE
     Indication: Product used for unknown indication

REACTIONS (1)
  - Immune-mediated enterocolitis [Recovered/Resolved]

NARRATIVE: CASE EVENT DATE: 20221101
